FAERS Safety Report 7266188-2 (Version None)
Quarter: 2011Q1

REPORT INFORMATION
  Report Type: 
  Country: None (occurrence: None)
  Receive Date: 20110131
  Receipt Date: 20100723
  Transmission Date: 20110831
  Serious: No
  Sender: FDA-Public Use
  Company Number: US-ABBOTT-10P-163-0660993-00

PATIENT
  Age: 4 Year
  Sex: Female

DRUGS (1)
  1. LUPRON DEPOT [Suspect]
     Indication: PRECOCIOUS PUBERTY
     Route: 050
     Dates: start: 20100625

REACTIONS (3)
  - PYREXIA [None]
  - NASOPHARYNGITIS [None]
  - NASAL CONGESTION [None]
